FAERS Safety Report 15487622 (Version 1)
Quarter: 2018Q4

REPORT INFORMATION
  Report Type: Spontaneous
  Country: US (occurrence: None)
  Receive Date: 20181011
  Receipt Date: 20181011
  Transmission Date: 20190205
  Serious: Yes (Death)
  Sender: FDA-Public Use
  Company Number: 2018ADA01829

PATIENT
  Age: 78 Year
  Sex: Male

DRUGS (13)
  1. CELEXA [Concomitant]
     Active Substance: CITALOPRAM HYDROBROMIDE
  2. SINEMET CR (CARBIDOPA; LEVODOPA) [Concomitant]
  3. XARELTO [Concomitant]
     Active Substance: RIVAROXABAN
  4. AMITIZA [Concomitant]
     Active Substance: LUBIPROSTONE
  5. CEPHALEXIN. [Concomitant]
     Active Substance: CEPHALEXIN
  6. ZYRTEC ALLERGY (CETIRIZINE HYDROCHLORIDE) [Concomitant]
  7. GOCOVRI [Suspect]
     Active Substance: AMANTADINE
     Indication: DYSKINESIA
     Route: 048
     Dates: start: 20180706, end: 20180712
  8. CLOTRIMAZOLE. [Concomitant]
     Active Substance: CLOTRIMAZOLE
  9. CLOTRIMAZOLE / BETAMETHASONE (CLOTRIMAZOLE, BETAMETHASONE DIPROPIONATE) [Concomitant]
  10. FINASTERIDE. [Concomitant]
     Active Substance: FINASTERIDE
  11. LISINOPRIL. [Concomitant]
     Active Substance: LISINOPRIL
  12. ZETIA [Concomitant]
     Active Substance: EZETIMIBE
  13. METOPROLOL (METOPROLOL TARTRATE) [Concomitant]
     Active Substance: METOPROLOL TARTRATE

REACTIONS (2)
  - Death [None]
  - Dry mouth [None]

NARRATIVE: CASE EVENT DATE: 2018
